FAERS Safety Report 13140116 (Version 2)
Quarter: 2017Q4

REPORT INFORMATION
  Report Type: Spontaneous
  Country: CA (occurrence: CA)
  Receive Date: 20170123
  Receipt Date: 20171027
  Transmission Date: 20180320
  Serious: Yes (Other)
  Sender: FDA-Public Use
  Company Number: CA-BRACCO-001183

PATIENT
  Age: 32 Year
  Sex: Female

DRUGS (1)
  1. ISOVUE 300 [Suspect]
     Active Substance: IOPAMIDOL
     Indication: DIAGNOSTIC PROCEDURE
     Dosage: 115 ML, SINGLE
     Route: 042

REACTIONS (3)
  - Contrast media reaction [Unknown]
  - Rash pruritic [Unknown]
  - Heart rate increased [Unknown]
